FAERS Safety Report 4322938-6 (Version None)
Quarter: 2004Q1

REPORT INFORMATION
  Report Type: 
  Country: None (occurrence: None)
  Receive Date: 20040325
  Receipt Date: 20040301
  Transmission Date: 20041129
  Serious: Yes (Hospitalization)
  Sender: FDA-Public Use
  Company Number: 200410453DE

PATIENT
  Age: 55 Year
  Sex: Female

DRUGS (2)
  1. TAXOTERE [Suspect]
     Indication: GASTRIC CANCER
     Route: 042
  2. DEXAMETHASONE [Concomitant]

REACTIONS (4)
  - CHILLS [None]
  - DERMATITIS [None]
  - HYPOTENSION [None]
  - PYREXIA [None]
